FAERS Safety Report 17139661 (Version 1)
Quarter: 2019Q4

REPORT INFORMATION
  Report Type: Report from Study
  Country: US (occurrence: US)
  Receive Date: 20191211
  Receipt Date: 20191211
  Transmission Date: 20200122
  Serious: Yes (Hospitalization)
  Sender: FDA-Public Use
  Company Number: US-ROCHE-2491783

PATIENT
  Age: 66 Year
  Sex: Female
  Weight: 84.9 kg

DRUGS (2)
  1. ATEZOLIZUMAB. [Suspect]
     Active Substance: ATEZOLIZUMAB
     Indication: TRIPLE NEGATIVE BREAST CANCER
     Dosage: ON 06/NOV/2019, SHE RECEIVED MOST RECENT DOSE OF ATEZOLIZUMAB
     Route: 042
     Dates: start: 20190924
  2. OLAPARIB. [Suspect]
     Active Substance: OLAPARIB
     Indication: TRIPLE NEGATIVE BREAST CANCER
     Dosage: ON 06/NOV/2019, SHE RECEIVED MOST RECENT DOSE OF OLAPARIB
     Route: 048
     Dates: start: 20181228, end: 20191106

REACTIONS (5)
  - Muscular weakness [Unknown]
  - Dyspnoea [Unknown]
  - Anaemia [Unknown]
  - Pain [Unknown]
  - Dizziness [Unknown]

NARRATIVE: CASE EVENT DATE: 20191107
